FAERS Safety Report 25742655 (Version 1)
Quarter: 2025Q3

REPORT INFORMATION
  Report Type: Spontaneous
  Country: US (occurrence: US)
  Receive Date: 20250830
  Receipt Date: 20250830
  Transmission Date: 20251020
  Serious: No
  Sender: TEVA
  Company Number: US-TEVA-VS-3362802

PATIENT
  Age: 76 Year
  Sex: Female

DRUGS (3)
  1. MOXIFLOXACIN [Suspect]
     Active Substance: MOXIFLOXACIN
     Indication: Product used for unknown indication
     Dosage: TIW
     Route: 048
  2. AZITHROMYCIN [Concomitant]
     Active Substance: AZITHROMYCIN
     Indication: Product used for unknown indication
     Route: 048
  3. RIFABUTIN [Concomitant]
     Active Substance: RIFABUTIN
     Indication: Product used for unknown indication
     Route: 065

REACTIONS (1)
  - Liver function test [Unknown]
